FAERS Safety Report 4688199-3 (Version None)
Quarter: 2005Q2

REPORT INFORMATION
  Report Type: 
  Country: None (occurrence: None)
  Receive Date: 20050610
  Receipt Date: 20050602
  Transmission Date: 20051028
  Serious: Yes (Hospitalization)
  Sender: FDA-Public Use
  Company Number: IT-ABBOTT-05P-083-0302188-00

PATIENT
  Sex: Male

DRUGS (1)
  1. RITONAVIR SOFT GELATIN CAPSULES [Suspect]
     Indication: HIV INFECTION
     Route: 048
     Dates: start: 20041019, end: 20041227

REACTIONS (5)
  - ASCITES [None]
  - BLOOD CULTURE POSITIVE [None]
  - PYREXIA [None]
  - SHOCK [None]
  - STREPTOCOCCAL INFECTION [None]
